FAERS Safety Report 18919205 (Version 3)
Quarter: 2022Q4

REPORT INFORMATION
  Report Type: Report from Study
  Country: IE (occurrence: IE)
  Receive Date: 20210220
  Receipt Date: 20221226
  Transmission Date: 20230113
  Serious: Yes (Hospitalization)
  Sender: FDA-Public Use
  Company Number: IE-TAKEDA-2021TUS009833

PATIENT
  Age: 17 Year
  Sex: Male

DRUGS (1)
  1. HUMAN IMMUNOGLOBULIN G [Suspect]
     Active Substance: HUMAN IMMUNOGLOBULIN G
     Indication: Product used for unknown indication
     Dosage: 4 GRAM, 1/WEEK
     Route: 058
     Dates: start: 20200928

REACTIONS (4)
  - Medical device site fistula [Not Recovered/Not Resolved]
  - Medical device site infection [Not Recovered/Not Resolved]
  - Malaise [Not Recovered/Not Resolved]
  - Patient uncooperative [Unknown]

NARRATIVE: CASE EVENT DATE: 20221215
